FAERS Safety Report 24089737 (Version 1)
Quarter: 2024Q3

REPORT INFORMATION
  Report Type: Spontaneous
  Country: US (occurrence: US)
  Receive Date: 20240715
  Receipt Date: 20240715
  Transmission Date: 20241016
  Serious: No
  Sender: BIOCON
  Company Number: US-BIOCON BIOLOGICS LIMITED-BCN-2023-001406

PATIENT
  Sex: Male

DRUGS (1)
  1. FULPHILA [Suspect]
     Active Substance: PEGFILGRASTIM-JMDB
     Indication: Product used for unknown indication
     Dosage: UNK (STRENGTH: 6 / 0.6 MG / ML) INJECTION
     Route: 065

REACTIONS (1)
  - Device breakage [Unknown]
